FAERS Safety Report 5325463-9 (Version None)
Quarter: 2007Q2

REPORT INFORMATION
  Report Type: 
  Country: None (occurrence: None)
  Receive Date: 20070509
  Receipt Date: 20070426
  Transmission Date: 20071010
  Serious: Yes (Hospitalization)
  Sender: FDA-Public Use
  Company Number: 2007BI009258

PATIENT
  Age: 56 Year
  Sex: Female

DRUGS (4)
  1. AVONEX [Suspect]
     Indication: MULTIPLE SCLEROSIS
     Dosage: 30 UG; QW; IM
     Route: 030
     Dates: start: 20060721
  2. ATIVAN [Concomitant]
  3. DEXAMETHASONE 0.5MG TAB [Concomitant]
  4. DURAGESIC-100 [Concomitant]

REACTIONS (1)
  - LOSS OF CONTROL OF LEGS [None]
